FAERS Safety Report 23020536 (Version 2)
Quarter: 2023Q4

REPORT INFORMATION
  Report Type: Spontaneous
  Country: NZ (occurrence: NZ)
  Receive Date: 20231003
  Receipt Date: 20231006
  Transmission Date: 20240110
  Serious: Yes (Death, Other)
  Sender: FDA-Public Use
  Company Number: NZ-009507513-1808NZL010332

PATIENT

DRUGS (3)
  1. KEYTRUDA [Suspect]
     Active Substance: PEMBROLIZUMAB
     Indication: Non-small cell lung cancer
     Dosage: 200 MILLIGRAM, EVERY 3 WEEKS
     Route: 042
     Dates: start: 201709, end: 201710
  2. KEYTRUDA [Suspect]
     Active Substance: PEMBROLIZUMAB
     Dosage: 200 MILLIGRAM, EVERY 3 WEEKS; THIRD INFUSION DELAYED BY 10 DAYS
     Route: 042
     Dates: start: 2017, end: 2017
  3. KEYTRUDA [Suspect]
     Active Substance: PEMBROLIZUMAB
     Dosage: 200 MILLIGRAM, EVERY 3 WEEKS
     Route: 042
     Dates: start: 201801, end: 201801

REACTIONS (6)
  - Type 1 diabetes mellitus [Unknown]
  - Immune-mediated hypothyroidism [Unknown]
  - Death [Fatal]
  - Pathological fracture [Unknown]
  - Fatigue [Unknown]
  - Adverse event [Unknown]

NARRATIVE: CASE EVENT DATE: 20171101
